FAERS Safety Report 25601850 (Version 1)
Quarter: 2025Q3

REPORT INFORMATION
  Report Type: Spontaneous
  Country: TR (occurrence: TR)
  Receive Date: 20250724
  Receipt Date: 20250724
  Transmission Date: 20251020
  Serious: Yes (Life-Threatening, Hospitalization, Other)
  Sender: PFIZER
  Company Number: TR-PFIZER INC-PV202500087573

PATIENT
  Age: 53 Year
  Sex: Female

DRUGS (1)
  1. METHYLPREDNISOLONE ACETATE [Suspect]
     Active Substance: METHYLPREDNISOLONE ACETATE
     Indication: Facial paralysis
     Dosage: 80 MG, DAILY (TITRATED WITH DECREASING DOSES OF 16 MG)

REACTIONS (2)
  - Pulmonary mucormycosis [Recovered/Resolved]
  - Off label use [Unknown]
